APPROVED DRUG PRODUCT: INDOMETHACIN
Active Ingredient: INDOMETHACIN
Strength: 50MG
Dosage Form/Route: CAPSULE;ORAL
Application: A070354 | Product #001
Applicant: CYCLE PHARMACEUTICALS LTD
Approved: Jun 18, 1985 | RLD: No | RS: No | Type: DISCN